FAERS Safety Report 23721019 (Version 1)
Quarter: 2024Q2

REPORT INFORMATION
  Report Type: Spontaneous
  Country: DE (occurrence: DE)
  Receive Date: 20240409
  Receipt Date: 20240409
  Transmission Date: 20240716
  Serious: Yes (Other)
  Sender: FDA-Public Use
  Company Number: DE-BRISTOL-MYERS SQUIBB COMPANY-2024-052142

PATIENT
  Age: 52 Year

DRUGS (4)
  1. OPDIVO [Suspect]
     Active Substance: NIVOLUMAB
     Indication: Malignant melanoma
     Dates: start: 20210416
  2. OPDIVO [Suspect]
     Active Substance: NIVOLUMAB
     Dates: start: 202109, end: 202111
  3. OPDIVO [Suspect]
     Active Substance: NIVOLUMAB
     Dates: start: 202201, end: 202203
  4. YERVOY [Suspect]
     Active Substance: IPILIMUMAB
     Indication: Malignant melanoma
     Dates: start: 20210416

REACTIONS (12)
  - Hypotony of eye [Unknown]
  - Immune-mediated uveitis [Recovering/Resolving]
  - Macular oedema [Unknown]
  - Cataract [Unknown]
  - Ciliary body disorder [Unknown]
  - Type 2 diabetes mellitus [Unknown]
  - Atrial fibrillation [Unknown]
  - Achromotrichia acquired [Unknown]
  - Transaminases increased [Unknown]
  - Dermatitis exfoliative generalised [Unknown]
  - Rash [Recovering/Resolving]
  - Lipase increased [Unknown]

NARRATIVE: CASE EVENT DATE: 20210501
